FAERS Safety Report 15786839 (Version 1)
Quarter: 2019Q1

REPORT INFORMATION
  Report Type: Spontaneous
  Country: US (occurrence: US)
  Receive Date: 20190103
  Receipt Date: 20190103
  Transmission Date: 20190417
  Serious: Yes (Hospitalization, Other)
  Sender: FDA-Public Use
  Company Number: US-PFIZER INC-2018534311

PATIENT
  Age: 61 Year
  Sex: Male

DRUGS (8)
  1. ENOXAPARIN [Suspect]
     Active Substance: ENOXAPARIN
     Dosage: 40 MG, UNK
     Route: 058
  2. WARFARIN [Suspect]
     Active Substance: WARFARIN
     Dosage: 1 MG, UNK
  3. WARFARIN [Suspect]
     Active Substance: WARFARIN
     Dosage: 6 MG, UNK
  4. WARFARIN [Suspect]
     Active Substance: WARFARIN
     Dosage: 2.5 MG, UNK
     Route: 048
  5. WARFARIN [Suspect]
     Active Substance: WARFARIN
     Dosage: 4.5 MG, UNK
     Route: 048
  6. THROMBIN-JMI [Suspect]
     Active Substance: THROMBIN
     Dosage: 20000 IU, UNK
     Route: 061
  7. ENOXAPARIN [Suspect]
     Active Substance: ENOXAPARIN
     Dosage: 60 MG, 2X/DAY
     Route: 058
  8. WARFARIN [Suspect]
     Active Substance: WARFARIN
     Dosage: 5 MG, UNK
     Route: 048

REACTIONS (10)
  - International normalised ratio increased [Not Recovered/Not Resolved]
  - Thrombin time prolonged [Unknown]
  - Prothrombin time prolonged [Unknown]
  - Factor VII inhibition [Unknown]
  - Flank pain [Unknown]
  - Skin ulcer [Unknown]
  - Coagulopathy [Not Recovered/Not Resolved]
  - Retroperitoneal haematoma [Unknown]
  - Wound secretion [Unknown]
  - Abdominal pain lower [Unknown]
